FAERS Safety Report 5604012-1 (Version None)
Quarter: 2008Q1

REPORT INFORMATION
  Report Type: 
  Country: None (occurrence: None)
  Receive Date: 20080123
  Receipt Date: 20080123
  Transmission Date: 20080703
  Serious: Yes (Other)
  Sender: FDA-Public Use
  Company Number: None

PATIENT
  Sex: Male
  Weight: 117.1 kg

DRUGS (1)
  1. IFOSFAMIDE [Suspect]
     Indication: HODGKIN'S DISEASE REFRACTORY

REACTIONS (4)
  - CONFUSIONAL STATE [None]
  - ENCEPHALOPATHY [None]
  - LETHARGY [None]
  - UNRESPONSIVE TO STIMULI [None]
